FAERS Safety Report 13623211 (Version 1)
Quarter: 2017Q2

REPORT INFORMATION
  Report Type: Spontaneous
  Country: DE (occurrence: DE)
  Receive Date: 20170607
  Receipt Date: 20170607
  Transmission Date: 20170830
  Serious: Yes (Other)
  Sender: FDA-Public Use
  Company Number: DE-TEVA-773542GER

PATIENT
  Age: 66 Year
  Sex: Female

DRUGS (21)
  1. LAMOTRIGIN [Suspect]
     Active Substance: LAMOTRIGINE
     Route: 048
     Dates: start: 20160301, end: 20160331
  2. ARIPIPRAZOL [Suspect]
     Active Substance: ARIPIPRAZOLE
     Route: 048
     Dates: start: 20160518, end: 20160527
  3. SIMVASTATIN. [Concomitant]
     Active Substance: SIMVASTATIN
     Route: 048
     Dates: start: 20160301
  4. FOLSAEURE [Concomitant]
     Active Substance: FOLIC ACID
     Route: 048
     Dates: start: 20160401
  5. VITAMIN B12 [Concomitant]
     Active Substance: CYANOCOBALAMIN
     Route: 048
     Dates: start: 20160401
  6. CLOZAPIN [Suspect]
     Active Substance: CLOZAPINE
     Route: 048
     Dates: start: 20160527, end: 20160601
  7. CLOZAPIN [Suspect]
     Active Substance: CLOZAPINE
     Route: 048
     Dates: start: 20160711, end: 20160726
  8. LAMOTRIGIN [Suspect]
     Active Substance: LAMOTRIGINE
     Route: 048
     Dates: start: 20160401
  9. QUILONUM RETARD [Suspect]
     Active Substance: LITHIUM CARBONATE
     Route: 048
     Dates: start: 20160603
  10. VENLAFAXIN [Suspect]
     Active Substance: VENLAFAXINE HYDROCHLORIDE
     Route: 048
     Dates: start: 20160301
  11. CLOZAPIN [Suspect]
     Active Substance: CLOZAPINE
     Route: 048
     Dates: start: 20160609, end: 20160710
  12. ARIPIPRAZOL [Suspect]
     Active Substance: ARIPIPRAZOLE
     Route: 048
     Dates: start: 20160528, end: 20160610
  13. BISOPROLOL [Concomitant]
     Active Substance: BISOPROLOL
     Route: 048
     Dates: start: 20160301
  14. QUILONUM RETARD [Suspect]
     Active Substance: LITHIUM CARBONATE
     Route: 048
     Dates: start: 20160301, end: 20160602
  15. L-THYROXIN [Concomitant]
     Active Substance: LEVOTHYROXINE SODIUM
     Route: 048
     Dates: start: 20160301
  16. CLOZAPIN [Suspect]
     Active Substance: CLOZAPINE
     Route: 048
     Dates: start: 20160602, end: 20160608
  17. MOVICOL [Concomitant]
     Active Substance: POLYETHYLENE GLYCOL 3350\POTASSIUM CHLORIDE\SODIUM BICARBONATE\SODIUM CHLORIDE
     Route: 048
     Dates: start: 20160401
  18. CLOZAPIN [Suspect]
     Active Substance: CLOZAPINE
     Dosage: 0-250 MG
     Route: 048
     Dates: start: 20160329, end: 20160526
  19. ACETYLSALICYLSAEURE [Concomitant]
     Active Substance: ASPIRIN
     Route: 048
     Dates: start: 20160401
  20. CLOZAPIN [Suspect]
     Active Substance: CLOZAPINE
     Route: 048
     Dates: start: 20160727, end: 20160801
  21. CLOZAPIN [Suspect]
     Active Substance: CLOZAPINE
     Route: 048
     Dates: start: 20160802

REACTIONS (6)
  - Altered state of consciousness [Recovered/Resolved]
  - Electroencephalogram abnormal [Recovered/Resolved]
  - Urinary incontinence [Recovered/Resolved]
  - Gait disturbance [Recovered/Resolved]
  - Cognitive disorder [Recovered/Resolved]
  - Persistent depressive disorder [Recovered/Resolved]

NARRATIVE: CASE EVENT DATE: 20160606
